FAERS Safety Report 7840967 (Version 1)
Quarter: 2020Q3

REPORT INFORMATION
  Report Type: Report from Study
  Country: CA (occurrence: CA)
  Receive Date: 20110304
  Receipt Date: 20110304
  Transmission Date: 20201104
  Serious: Yes (Hospitalization)
  Sender: FDA-Public Use
  Company Number: CA-JNJFOC-20071000498

PATIENT
  Age: 57 Year
  Sex: Male
  Weight: 104 kg

DRUGS (24)
  1. CNTO 1275 [Suspect]
     Active Substance: USTEKINUMAB
     Dosage: WEEK 16
     Route: 058
  2. CNTO 1275 [Suspect]
     Active Substance: USTEKINUMAB
     Dosage: WEEK 68
     Route: 058
  3. CNTO 1275 [Suspect]
     Active Substance: USTEKINUMAB
     Dosage: WEEK 0
     Route: 058
  4. FLONASE [Concomitant]
     Active Substance: FLUTICASONE PROPIONATE
     Route: 045
  5. CRESTOR [Concomitant]
     Active Substance: ROSUVASTATIN CALCIUM
     Route: 048
  6. CNTO 1275 [Suspect]
     Active Substance: USTEKINUMAB
     Dosage: WEEK 12
     Route: 058
  7. CNTO 1275 [Suspect]
     Active Substance: USTEKINUMAB
     Dosage: WEEK 4
     Route: 058
  8. CNTO 1275 [Suspect]
     Active Substance: USTEKINUMAB
     Dosage: WEEK 36
     Route: 058
  9. CNTO 1275 [Suspect]
     Active Substance: USTEKINUMAB
     Dosage: WEEK 64
     Route: 058
  10. MOMETASONE FUROATE. [Concomitant]
     Active Substance: MOMETASONE FUROATE
     Route: 045
  11. CNTO 1275 [Suspect]
     Active Substance: USTEKINUMAB
     Indication: PSORIASIS
     Dosage: WEEK 56
     Route: 058
  12. CNTO 1275 [Suspect]
     Active Substance: USTEKINUMAB
     Dosage: WEEK 44
     Route: 058
  13. CNTO 1275 [Suspect]
     Active Substance: USTEKINUMAB
     Dosage: WEEK 72
     Route: 058
  14. CNTO 1275 [Suspect]
     Active Substance: USTEKINUMAB
     Dosage: WEEK 60
     Route: 058
  15. CNTO 1275 [Suspect]
     Active Substance: USTEKINUMAB
     Dosage: WEEK 76
     Route: 058
  16. CNTO 1275 [Suspect]
     Active Substance: USTEKINUMAB
     Dosage: WEEK 28
     Route: 058
  17. ASPIRIN. [Concomitant]
     Active Substance: ASPIRIN
     Route: 048
  18. CNTO 1275 [Suspect]
     Active Substance: USTEKINUMAB
     Dosage: WEEK 52
     Route: 058
  19. CNTO 1275 [Suspect]
     Active Substance: USTEKINUMAB
     Dosage: WEEK 48
     Route: 058
  20. CNTO 1275 [Suspect]
     Active Substance: USTEKINUMAB
     Dosage: WEEK 40
     Route: 058
  21. SYSTANE (POLYETHYLENE GLYCOL 400\PROPYLENE GLYCOL) [Concomitant]
     Active Substance: POLYETHYLENE GLYCOL 400\PROPYLENE GLYCOL
     Route: 047
  22. TRAZODONE HYDROCHLORIDE. [Concomitant]
     Active Substance: TRAZODONE HYDROCHLORIDE
     Route: 048
  23. ARTHROTEC [Concomitant]
     Active Substance: DICLOFENAC SODIUM\MISOPROSTOL
     Route: 048
  24. PROZAC [Concomitant]
     Active Substance: FLUOXETINE HYDROCHLORIDE
     Route: 048

REACTIONS (3)
  - Presyncope [Not Recovered/Not Resolved]
  - Deafness neurosensory [Not Recovered/Not Resolved]
  - Sinus bradycardia [None]

NARRATIVE: CASE EVENT DATE: 20070904
